FAERS Safety Report 10042375 (Version 1)
Quarter: 2014Q1

REPORT INFORMATION
  Report Type: Report from Study
  Country: BR (occurrence: BR)
  Receive Date: 20140327
  Receipt Date: 20140327
  Transmission Date: 20141002
  Serious: Yes (Death, Hospitalization, Other)
  Sender: FDA-Public Use
  Company Number: PHHY2014BR036896

PATIENT
  Age: 75 Year
  Sex: Female
  Weight: 60 kg

DRUGS (4)
  1. EXELON PATCH [Suspect]
     Indication: DEMENTIA ALZHEIMER^S TYPE
     Dosage: 9.5 MG, QD
     Route: 062
  2. LANTUS [Concomitant]
     Indication: DIABETES MELLITUS
     Dosage: UNK UKN, UNK
  3. SOMALGIN [Concomitant]
     Indication: CARDIOMYOPATHY
     Dosage: 100 MG, UNK
     Dates: start: 2002
  4. CLOPIDOGREL [Concomitant]
     Indication: BLOOD CHOLESTEROL
     Dosage: UNK UKN, UNK

REACTIONS (7)
  - Sepsis [Fatal]
  - Cardiomyopathy [Fatal]
  - Parkinson^s disease [Fatal]
  - Dementia Alzheimer^s type [Fatal]
  - Diabetes mellitus [Fatal]
  - Urinary tract infection [Unknown]
  - Bronchopneumonia [Unknown]
